FAERS Safety Report 17671698 (Version 1)
Quarter: 2020Q2

REPORT INFORMATION
  Report Type: Other
  Country: US (occurrence: US)
  Receive Date: 20200415
  Receipt Date: 20200415
  Transmission Date: 20200713
  Serious: Yes (Other)
  Sender: FDA-Public Use
  Company Number: US-ALKERMES INC.-ALK-2019-002660

PATIENT
  Age: 40 Year
  Sex: Male
  Weight: 95.2 kg

DRUGS (1)
  1. VIVITROL [Suspect]
     Active Substance: NALTREXONE
     Indication: DRUG DEPENDENCE
     Dosage: 380 MG, QMO
     Route: 030
     Dates: start: 20181217

REACTIONS (6)
  - Pain [Unknown]
  - Alcoholism [Unknown]
  - Muscle injury [Unknown]
  - Injection site reaction [Unknown]
  - Injection site pain [Unknown]
  - Tremor [Unknown]

NARRATIVE: CASE EVENT DATE: 20181217
